FAERS Safety Report 17305861 (Version 1)
Quarter: 2020Q1

REPORT INFORMATION
  Report Type: Spontaneous
  Country: IT (occurrence: IT)
  Receive Date: 20200123
  Receipt Date: 20200123
  Transmission Date: 20200409
  Serious: Yes (Hospitalization, Other)
  Sender: FDA-Public Use
  Company Number: IT-MYLANLABS-2020M1006507

PATIENT
  Age: 77 Year
  Sex: Male

DRUGS (2)
  1. CYCLOPHOSPHAMIDE. [Suspect]
     Active Substance: CYCLOPHOSPHAMIDE
     Indication: HAEMOPHILIA
     Dosage: UNK
     Route: 065
  2. PREDNISONE. [Suspect]
     Active Substance: PREDNISONE
     Indication: HAEMOPHILIA
     Dosage: UNK
     Route: 065

REACTIONS (4)
  - Enterococcal sepsis [Unknown]
  - Thrombosis [Unknown]
  - Infection [Unknown]
  - Joint dislocation [Unknown]

NARRATIVE: CASE EVENT DATE: 201711
